FAERS Safety Report 6414566-3 (Version None)
Quarter: 2009Q4

REPORT INFORMATION
  Report Type: 
  Country: None (occurrence: None)
  Receive Date: 20091026
  Receipt Date: 20091013
  Transmission Date: 20100525
  Serious: Yes (Death, Other)
  Sender: FDA-Public Use
  Company Number: CA-PURDUE-CAN-2009-0001121

PATIENT
  Age: 49 Year
  Sex: Male

DRUGS (8)
  1. OXYCONTIN [Suspect]
     Indication: DRUG USE FOR UNKNOWN INDICATION
     Dosage: 40 MG, TID
  2. OXYCODONE HCL [Suspect]
     Indication: DRUG USE FOR UNKNOWN INDICATION
  3. AMITRIPTYLINE [Suspect]
     Indication: DRUG USE FOR UNKNOWN INDICATION
  4. DIAZEPAM [Suspect]
     Indication: DRUG USE FOR UNKNOWN INDICATION
  5. GABAPENTIN [Suspect]
     Indication: DRUG USE FOR UNKNOWN INDICATION
  6. CARBAMAZEPINE [Suspect]
     Indication: DRUG USE FOR UNKNOWN INDICATION
  7. TERBINAFINE HCL [Suspect]
     Indication: DRUG USE FOR UNKNOWN INDICATION
  8. METOPROLOL [Concomitant]
     Indication: DRUG USE FOR UNKNOWN INDICATION

REACTIONS (4)
  - ARTERIOSCLEROSIS [None]
  - DRUG TOXICITY [None]
  - HYPERTENSIVE HEART DISEASE [None]
  - UNRESPONSIVE TO STIMULI [None]
